FAERS Safety Report 14250698 (Version 1)
Quarter: 2017Q4

REPORT INFORMATION
  Report Type: Spontaneous
  Country: US (occurrence: US)
  Receive Date: 20171205
  Receipt Date: 20171205
  Transmission Date: 20180321
  Serious: No
  Sender: FDA-Public Use
  Company Number: US-PFIZER INC-2017514806

PATIENT
  Age: 56 Year

DRUGS (1)
  1. TETRACYCLINE HCL [Suspect]
     Active Substance: TETRACYCLINE HYDROCHLORIDE
     Dosage: UNK

REACTIONS (6)
  - Tooth disorder [Unknown]
  - Foetal exposure timing unspecified [Unknown]
  - Enamel anomaly [Unknown]
  - Feeling abnormal [Unknown]
  - Tooth discolouration [Unknown]
  - Tooth fracture [Unknown]
